FAERS Safety Report 9704605 (Version 3)
Quarter: 2014Q1

REPORT INFORMATION
  Report Type: Report from Study
  Country: CA (occurrence: CA)
  Receive Date: 20131122
  Receipt Date: 20140123
  Transmission Date: 20141002
  Serious: Yes (Hospitalization)
  Sender: FDA-Public Use
  Company Number: CA-ROCHE-1251426

PATIENT
  Age: 14 Year
  Sex: Male
  Weight: 34.7 kg

DRUGS (49)
  1. BLINDED TOCILIZUMAB [Suspect]
     Indication: JUVENILE IDIOPATHIC ARTHRITIS
     Dosage: DATE OF LAST DOSE PRIOR TO SAE: 10/OCT/2013
     Route: 042
     Dates: start: 20081030
  2. TOCILIZUMAB [Suspect]
     Indication: JUVENILE IDIOPATHIC ARTHRITIS
     Dosage: LAST DOSE PRIOR TO SAE:04/JUL/2013
     Route: 042
     Dates: end: 20130718
  3. TOCILIZUMAB [Suspect]
     Dosage: TEMPORARILY INTERRUPTED ON 11/NOV/2013.
     Route: 042
     Dates: end: 20131111
  4. PREDNISONE [Suspect]
     Indication: PRODUCT USED FOR UNKNOWN INDICATION
     Route: 065
  5. PREDNISONE [Suspect]
     Dosage: 5MG/2MG
     Route: 048
     Dates: start: 20130704
  6. PREDNISONE [Suspect]
     Route: 048
     Dates: start: 20100721, end: 20100804
  7. PREDNISONE [Suspect]
     Route: 065
  8. PREDNISONE [Suspect]
     Dosage: QAM BY MOUTH EVERY MORNING
     Route: 048
     Dates: start: 20140110
  9. PREDNISONE [Suspect]
     Dosage: BY ENTERAL TUBE DAILY BEFORE BED
     Route: 048
     Dates: start: 20140110
  10. IBUPROFEN [Suspect]
     Indication: PRODUCT USED FOR UNKNOWN INDICATION
     Route: 048
     Dates: start: 20120106
  11. IBUPROFEN [Suspect]
     Route: 048
     Dates: start: 201001, end: 201011
  12. IBUPROFEN [Suspect]
     Route: 048
     Dates: start: 201011, end: 20110909
  13. IBUPROFEN [Suspect]
     Route: 048
     Dates: start: 20110913, end: 20120105
  14. IBUPROFEN [Suspect]
     Route: 048
     Dates: start: 20091001, end: 201006
  15. PAMIDRONATE [Concomitant]
     Indication: OSTEOPOROSIS
     Route: 042
     Dates: start: 20040607, end: 20060301
  16. FOLIC ACID [Concomitant]
     Route: 048
     Dates: start: 20020203, end: 20100315
  17. RANITIDINE [Concomitant]
     Indication: ABDOMINAL PAIN
     Route: 048
     Dates: start: 20021112, end: 200308
  18. FERROUS FUMARATE [Concomitant]
     Route: 048
     Dates: start: 20090514
  19. FERROUS FUMARATE [Concomitant]
     Route: 048
     Dates: start: 20090429, end: 20090513
  20. ACYCLOVIR [Concomitant]
     Route: 042
     Dates: start: 20121231, end: 20130107
  21. ACYCLOVIR [Concomitant]
     Route: 048
     Dates: start: 20120108, end: 20130114
  22. AMOXIL [Concomitant]
     Route: 048
     Dates: start: 20120509, end: 20120515
  23. AMLODIPINE [Concomitant]
     Indication: HYPERTENSION
     Route: 048
     Dates: start: 20110304, end: 20110316
  24. AMLODIPINE [Concomitant]
     Route: 048
     Dates: start: 20110317, end: 201106
  25. AMLODIPINE [Concomitant]
     Route: 048
     Dates: start: 20040203, end: 20100425
  26. ARISTOSPAN [Concomitant]
     Route: 065
     Dates: start: 20110208, end: 20110208
  27. ARISTOSPAN [Concomitant]
     Route: 065
     Dates: start: 20110208, end: 20110208
  28. ARISTOSPAN [Concomitant]
     Route: 065
     Dates: start: 20110208, end: 20110208
  29. ARISTOSPAN [Concomitant]
     Route: 065
     Dates: start: 20100410, end: 20100410
  30. GABAPENTIN [Concomitant]
     Indication: PAIN MANAGEMENT
     Route: 065
     Dates: start: 20130511
  31. GABAPENTIN [Concomitant]
     Dosage: BY MOUTH EVERY MORNING
     Route: 048
     Dates: start: 20140110
  32. ACETAMINOPHEN [Concomitant]
     Route: 065
  33. ACETAMINOPHEN [Concomitant]
     Route: 048
     Dates: start: 20120119
  34. MORPHINE [Concomitant]
     Route: 065
  35. ENALAPRIL [Concomitant]
     Indication: HYPERTENSION
     Route: 065
  36. ENALAPRIL [Concomitant]
     Route: 048
     Dates: start: 20090528, end: 20100419
  37. ENALAPRIL [Concomitant]
     Route: 048
     Dates: start: 20081210, end: 20090512
  38. ENALAPRIL [Concomitant]
     Route: 048
     Dates: start: 20090513, end: 20090527
  39. ENALAPRIL [Concomitant]
     Route: 048
     Dates: start: 20100425, end: 20101124
  40. ENALAPRIL [Concomitant]
     Route: 048
     Dates: start: 20130704
  41. ENALAPRIL [Concomitant]
     Route: 048
     Dates: start: 20130704
  42. ENALAPRIL [Concomitant]
     Route: 048
     Dates: start: 20080730, end: 20081209
  43. ENALAPRIL [Concomitant]
     Route: 065
  44. CELEXA (CANADA) [Concomitant]
     Route: 048
     Dates: start: 20111013
  45. CELEXA (CANADA) [Concomitant]
     Route: 048
     Dates: start: 20110930, end: 20111012
  46. OMEPRAZOLE [Concomitant]
     Route: 065
  47. TYLENOL [Concomitant]
     Route: 065
  48. M-ESLON [Concomitant]
     Route: 048
     Dates: end: 20140117
  49. BISMUTH SUBSALICYLATE [Concomitant]
     Route: 065

REACTIONS (2)
  - Arthritis [Recovered/Resolved]
  - Gastroenteritis [Recovered/Resolved]
